FAERS Safety Report 11720551 (Version 1)
Quarter: 2015Q4

REPORT INFORMATION
  Report Type: Spontaneous
  Country: JP (occurrence: JP)
  Receive Date: 20151110
  Receipt Date: 20151110
  Transmission Date: 20160304
  Serious: Yes (Hospitalization, Other)
  Sender: FDA-Public Use
  Company Number: JP-AMGEN-JPNSP2015117897

PATIENT
  Age: 66 Year
  Sex: Female

DRUGS (2)
  1. ENBREL [Suspect]
     Active Substance: ETANERCEPT
     Indication: RHEUMATOID ARTHRITIS
     Dosage: UNK
     Route: 058
     Dates: start: 201310, end: 201312
  2. MIZORIBINE [Concomitant]
     Active Substance: MIZORIBINE
     Dosage: 150 MG, DAILY
     Route: 048
     Dates: start: 201311

REACTIONS (1)
  - Nephrotic syndrome [Recovering/Resolving]
